FAERS Safety Report 4283948-0 (Version None)
Quarter: 2004Q1

REPORT INFORMATION
  Report Type: 
  Country: None (occurrence: None)
  Receive Date: 20040202
  Receipt Date: 20040126
  Transmission Date: 20041129
  Serious: Yes (Other)
  Sender: FDA-Public Use
  Company Number: WAES 0401USA01538

PATIENT
  Age: 60 Year
  Sex: Male

DRUGS (2)
  1. DIGOXIN [Suspect]
     Route: 048
     Dates: end: 20040115
  2. PEPCID [Suspect]
     Indication: GASTRIC ULCER
     Route: 048
     Dates: end: 20040115

REACTIONS (1)
  - ATRIOVENTRICULAR BLOCK COMPLETE [None]
